FAERS Safety Report 5723011-2 (Version None)
Quarter: 2008Q2

REPORT INFORMATION
  Report Type: 
  Country: None (occurrence: None)
  Receive Date: 20080428
  Receipt Date: 20080428
  Transmission Date: 20081010
  Serious: No
  Sender: FDA-Public Use
  Company Number: None

PATIENT
  Age: 23 Year
  Sex: Female
  Weight: 63.5036 kg

DRUGS (2)
  1. DEXTRO AMPHETAMINE SULFATE TAB [Suspect]
     Indication: ATTENTION DEFICIT/HYPERACTIVITY DISORDER
     Dosage: 20 MG  3 X A DAY  PO
     Route: 048
     Dates: start: 20040801, end: 20080101
  2. DEXTROAMPETAMINE SULFATE TAB [Suspect]
     Dosage: 20 MG  3 X A DAY  PO
     Route: 048
     Dates: start: 20080405, end: 20080425

REACTIONS (2)
  - DRUG EFFECT DECREASED [None]
  - PHARMACEUTICAL PRODUCT COMPLAINT [None]
